FAERS Safety Report 17760880 (Version 2)
Quarter: 2020Q2

REPORT INFORMATION
  Report Type: Spontaneous
  Country: US (occurrence: US)
  Receive Date: 20200508
  Receipt Date: 20200514
  Transmission Date: 20200714
  Serious: No
  Sender: FDA-Public Use
  Company Number: US-PFIZER INC-2020182783

PATIENT
  Age: 82 Year
  Sex: Female

DRUGS (1)
  1. IBRANCE [Suspect]
     Active Substance: PALBOCICLIB
     Indication: BREAST CANCER FEMALE
     Dosage: 125 MG, CYCLIC [1 CAPSULE, DAILY (DAYS 1-21, THEN OFF FOR 7 DAYS)]
     Route: 048
     Dates: start: 20200113

REACTIONS (3)
  - Decreased appetite [Unknown]
  - Stomatitis [Recovered/Resolved]
  - Weight decreased [Unknown]
